FAERS Safety Report 23169689 (Version 1)
Quarter: 2023Q4

REPORT INFORMATION
  Report Type: Spontaneous
  Country: US (occurrence: US)
  Receive Date: 20231110
  Receipt Date: 20231110
  Transmission Date: 20240109
  Serious: No
  Sender: FDA-Public Use
  Company Number: US-AMGEN-USASP2023198688

PATIENT
  Age: 1 Year
  Sex: Male

DRUGS (1)
  1. CINACALCET HYDROCHLORIDE [Suspect]
     Active Substance: CINACALCET HYDROCHLORIDE
     Indication: Familial hypocalciuric hypercalcaemia
     Dosage: UNK
     Route: 065
     Dates: start: 2017

REACTIONS (4)
  - Drug effective for unapproved indication [Unknown]
  - Disturbance in attention [Not Recovered/Not Resolved]
  - Off label use [Unknown]
  - Vomiting [Not Recovered/Not Resolved]

NARRATIVE: CASE EVENT DATE: 20170101
